FAERS Safety Report 23465655 (Version 5)
Quarter: 2024Q1

REPORT INFORMATION
  Report Type: Spontaneous
  Country: CA (occurrence: CA)
  Receive Date: 20240201
  Receipt Date: 20240318
  Transmission Date: 20240410
  Serious: Yes (Other)
  Sender: FDA-Public Use
  Company Number: CA-PFIZER INC-202300430049

PATIENT
  Age: 49 Year
  Sex: Female

DRUGS (6)
  1. ABRILADA [Suspect]
     Active Substance: ADALIMUMAB-AFZB
     Indication: Psoriatic arthropathy
     Dosage: 40 MG, EVERY OTHER WEEK
     Route: 058
     Dates: start: 20231129
  2. ABRILADA [Suspect]
     Active Substance: ADALIMUMAB-AFZB
     Dosage: 40 MG, EVERY OTHER WEEK
     Route: 058
     Dates: start: 20240124
  3. DIAZEPAM [Concomitant]
     Active Substance: DIAZEPAM
     Dosage: 1 DF
  4. LITHIUM [Concomitant]
     Active Substance: LITHIUM
     Dosage: 1 DF
  5. METHOTREXATE [Concomitant]
     Active Substance: METHOTREXATE
     Dosage: 1 DF, DOSAGE INFO: UNKNOWN
     Route: 065
  6. METHOTREXATE [Concomitant]
     Active Substance: METHOTREXATE
     Dosage: UNK
     Dates: start: 20240119

REACTIONS (4)
  - Haematemesis [Unknown]
  - Chills [Unknown]
  - Chest pain [Unknown]
  - Condition aggravated [Unknown]

NARRATIVE: CASE EVENT DATE: 20240124
